FAERS Safety Report 22634362 (Version 1)
Quarter: 2023Q2

REPORT INFORMATION
  Report Type: Spontaneous
  Country: US (occurrence: None)
  Receive Date: 20230623
  Receipt Date: 20230623
  Transmission Date: 20230722
  Serious: Yes (Death)
  Sender: FDA-Public Use
  Company Number: 2023A144531

PATIENT

DRUGS (2)
  1. IMFINZI [Suspect]
     Active Substance: DURVALUMAB
     Indication: Squamous cell carcinoma of head and neck
     Dosage: 1500.0MG ONCE/SINGLE ADMINISTRATION
     Route: 041
  2. IMJUDO [Suspect]
     Active Substance: TREMELIMUMAB-ACTL
     Indication: Squamous cell carcinoma of head and neck
     Dosage: 300.0MG ONCE/SINGLE ADMINISTRATION
     Route: 041

REACTIONS (1)
  - Death [Fatal]
